FAERS Safety Report 8793874 (Version 1)
Quarter: 2012Q4

REPORT INFORMATION
  Report Type: Report from Study
  Country: US (occurrence: US)
  Receive Date: 20120918
  Receipt Date: 20120918
  Transmission Date: 20130627
  Serious: Yes (Hospitalization)
  Sender: FDA-Public Use
  Company Number: US-009507513-1112USA00192

PATIENT

DRUGS (20)
  1. MK-5172 [Suspect]
     Indication: HEPATITIS C
     Dosage: 400 mg, qd
     Route: 048
     Dates: start: 20110920, end: 20111123
  2. PEGINTRON [Suspect]
     Indication: HEPATITIS C
     Dosage: 0.4 ml, QW
     Route: 058
     Dates: start: 20110920
  3. REBETOL [Suspect]
     Indication: HEPATITIS C
     Dosage: 3 DF, PM
     Route: 048
     Dates: start: 20110920, end: 20111122
  4. REBETOL [Suspect]
     Dosage: 2 DF, AM
     Route: 048
     Dates: start: 20110920, end: 20111005
  5. REBETOL [Suspect]
     Dosage: 2 DF, AM
     Route: 048
     Dates: start: 20111007, end: 20111123
  6. REBETOL [Suspect]
     Dosage: 2 DF, AM
     Route: 048
     Dates: start: 20111117, end: 20111123
  7. REBETOL [Suspect]
     Dosage: 3 DF, PM
     Route: 048
     Dates: start: 20111129, end: 20111219
  8. REBETOL [Suspect]
     Dosage: 2 DF, AM
     Route: 048
     Dates: start: 20111129, end: 20120115
  9. REBETOL [Suspect]
     Dosage: 2 DF, PM
     Route: 048
     Dates: start: 20111220, end: 20120103
  10. REBETOL [Suspect]
     Dosage: 3 DF, PM
     Route: 048
     Dates: start: 20120104, end: 20120114
  11. REBETOL [Suspect]
     Dosage: 2 DF, AM
     Route: 048
     Dates: start: 20120117, end: 20120304
  12. REBETOL [Suspect]
     Dosage: 3 DF, PM
     Route: 048
     Dates: start: 20120116, end: 20120307
  13. REBETOL [Suspect]
     Dosage: 2 DF, AM
     Route: 048
     Dates: start: 20120306, end: 20120308
  14. WELLBUTRIN XL [Concomitant]
     Indication: DEPRESSION
     Dosage: 1 DF, qd
     Route: 048
     Dates: start: 200701
  15. EFFEXOR [Concomitant]
     Indication: DEPRESSION
     Dosage: 2 DF, qd
     Route: 048
     Dates: start: 200301
  16. VALTREX [Concomitant]
     Indication: HERPES VIRUS INFECTION
     Dosage: 1 DF, qd
     Route: 048
     Dates: start: 200101
  17. VITAMIN B COMPLEX [Concomitant]
     Indication: ROUTINE HEALTH MAINTENANCE
     Dosage: 1 DF, qd
     Route: 048
     Dates: start: 198201
  18. LYSINE [Concomitant]
     Indication: HERPES VIRUS INFECTION
     Dosage: 1 DF, qd
     Route: 048
     Dates: start: 199001
  19. DEPLIN [Concomitant]
     Indication: ROUTINE HEALTH MAINTENANCE
     Dosage: 1 DF, qd
     Dates: start: 20110601
  20. IBUPROFEN [Concomitant]
     Indication: PROPHYLAXIS
     Dosage: 1 tablet, PRN
     Route: 048
     Dates: start: 20110920, end: 20120529

REACTIONS (1)
  - Dehydration [Recovered/Resolved with Sequelae]
